FAERS Safety Report 6445631-2 (Version None)
Quarter: 2009Q4

REPORT INFORMATION
  Report Type: 
  Country: None (occurrence: None)
  Receive Date: 20091118
  Receipt Date: 20091112
  Transmission Date: 20100525
  Serious: Yes (Death)
  Sender: FDA-Public Use
  Company Number: US-GILEAD-2009-0025392

PATIENT
  Sex: Female
  Weight: 61.744 kg

DRUGS (14)
  1. LETAIRIS [Suspect]
     Indication: PULMONARY ARTERIAL HYPERTENSION
     Route: 048
     Dates: start: 20090318, end: 20091110
  2. COUMADIN [Concomitant]
  3. OXYGEN [Concomitant]
  4. LASIX [Concomitant]
  5. ADVIAR 250-50 [Concomitant]
  6. SPIRIVA [Concomitant]
  7. COMBIVENT [Concomitant]
  8. ALBUTEROL [Concomitant]
  9. MORPHINE [Concomitant]
  10. ATIVAN [Concomitant]
  11. VITAMIN D [Concomitant]
  12. AMBIEN [Concomitant]
  13. PREVACID [Concomitant]
  14. COLACE-T [Concomitant]

REACTIONS (1)
  - RESPIRATORY FAILURE [None]
